FAERS Safety Report 10047344 (Version 2)
Quarter: 2014Q2

REPORT INFORMATION
  Report Type: Spontaneous
  Country: US (occurrence: US)
  Receive Date: 20140331
  Receipt Date: 20140421
  Transmission Date: 20141212
  Serious: No
  Sender: FDA-Public Use
  Company Number: US-JNJFOC-20140312631

PATIENT
  Age: 64 Year
  Sex: Female
  Weight: 72.58 kg

DRUGS (13)
  1. SANDOZ FENTANYL TRANSDERMAL SYSTEM [Suspect]
     Indication: BACK PAIN
     Route: 062
     Dates: start: 20140312
  2. GABAPENTIN [Concomitant]
     Indication: NEURALGIA
     Route: 048
     Dates: start: 2011
  3. FUROSEMIDE [Concomitant]
     Indication: SWELLING
     Route: 048
  4. FUROSEMIDE [Concomitant]
     Indication: HYPERTENSION
     Route: 048
  5. SPIRONOLACTONE [Concomitant]
     Indication: NUTRITIONAL SUPPLEMENTATION
     Route: 048
  6. OXYCODONE [Concomitant]
     Indication: PAIN
     Route: 048
  7. OXYCODONE [Concomitant]
     Indication: PAIN
     Route: 048
     Dates: start: 201402
  8. POTASSIUM [Concomitant]
     Indication: NUTRITIONAL SUPPLEMENTATION
     Route: 048
     Dates: start: 2003
  9. CARVEDILOL [Concomitant]
     Indication: ARRHYTHMIA
     Route: 048
     Dates: start: 2005
  10. NEXIUM [Concomitant]
     Indication: GASTROOESOPHAGEAL REFLUX DISEASE
     Route: 048
  11. PATANOL [Concomitant]
     Route: 047
     Dates: start: 1990
  12. PROMETHAZINE [Concomitant]
     Indication: NAUSEA
     Route: 048
  13. FLUTICASONE PROPIONATE [Concomitant]
     Route: 045

REACTIONS (6)
  - Weight increased [Unknown]
  - Product quality issue [Unknown]
  - Inadequate analgesia [Not Recovered/Not Resolved]
  - Inappropriate schedule of drug administration [Unknown]
  - Hypotension [Unknown]
  - Activities of daily living impaired [Recovered/Resolved]
